FAERS Safety Report 11964781 (Version 1)
Quarter: 2016Q1

REPORT INFORMATION
  Report Type: Spontaneous
  Country: US (occurrence: None)
  Receive Date: 20160122
  Receipt Date: 20160122
  Transmission Date: 20160526
  Serious: Yes (Disabling)
  Sender: FDA-Public Use
  Company Number: None

PATIENT
  Age: 54 Year
  Sex: Female
  Weight: 102.06 kg

DRUGS (10)
  1. METOPROLOL. [Concomitant]
     Active Substance: METOPROLOL
  2. METFORMIN [Concomitant]
     Active Substance: METFORMIN HYDROCHLORIDE
  3. CITALOPRAM [Concomitant]
     Active Substance: CITALOPRAM HYDROBROMIDE
  4. LEVEMIR [Concomitant]
     Active Substance: INSULIN DETEMIR
  5. ONE A DAY WOMENS VITAMIN [Concomitant]
  6. CONTRAVE [Suspect]
     Active Substance: BUPROPION HYDROCHLORIDE\NALTREXONE HYDROCHLORIDE
     Indication: APPETITE DISORDER
     Dosage: BUILD TO 4 PER DAY, FOUR TIMES DAILY, TAKEN BY MOUTH
  7. AMITRIPTYLINE [Concomitant]
     Active Substance: AMITRIPTYLINE
  8. EMERGEN-C [Concomitant]
     Active Substance: VITAMINS
  9. CONTRAVE [Suspect]
     Active Substance: BUPROPION HYDROCHLORIDE\NALTREXONE HYDROCHLORIDE
     Indication: WEIGHT DECREASED
     Dosage: BUILD TO 4 PER DAY, FOUR TIMES DAILY, TAKEN BY MOUTH
  10. BYDUREON [Concomitant]
     Active Substance: EXENATIDE

REACTIONS (6)
  - Loss of control of legs [None]
  - Gait disturbance [None]
  - Depression [None]
  - Withdrawal syndrome [None]
  - Muscle spasms [None]
  - Headache [None]

NARRATIVE: CASE EVENT DATE: 20160114
